FAERS Safety Report 24781604 (Version 1)
Quarter: 2024Q4

REPORT INFORMATION
  Report Type: Spontaneous
  Country: CN (occurrence: CN)
  Receive Date: 20241227
  Receipt Date: 20241227
  Transmission Date: 20250115
  Serious: Yes (Other)
  Sender: BAXTER
  Company Number: None

PATIENT
  Age: 44 Year
  Sex: Female
  Weight: 72 kg

DRUGS (8)
  1. CYCLOPHOSPHAMIDE [Suspect]
     Active Substance: CYCLOPHOSPHAMIDE
     Indication: Neoplasm malignant
     Dosage: 1000 MG, ONE TIME IN ONE DAY, DILUTED WITH 100 ML OF 0.9% SODIUM CHLORIDE, THIRD CHEMOTHERAPY OF SEQ
     Route: 041
     Dates: start: 20241123, end: 20241123
  2. CYCLOPHOSPHAMIDE [Suspect]
     Active Substance: CYCLOPHOSPHAMIDE
     Indication: Chemotherapy
  3. CYCLOPHOSPHAMIDE [Suspect]
     Active Substance: CYCLOPHOSPHAMIDE
     Indication: Breast cancer female
  4. EPIRUBICIN [Suspect]
     Active Substance: EPIRUBICIN
     Indication: Neoplasm malignant
     Dosage: 160 MG, ONE TIME IN ONE DAY, DILUTED WITH 100 ML OF 0.9% SODIUM CHLORIDE, THIRD CHEMOTHERAPY OF SEQU
     Route: 041
     Dates: start: 20241123, end: 20241123
  5. EPIRUBICIN [Suspect]
     Active Substance: EPIRUBICIN
     Indication: Chemotherapy
  6. EPIRUBICIN [Suspect]
     Active Substance: EPIRUBICIN
     Indication: Breast cancer female
  7. SODIUM CHLORIDE [Suspect]
     Active Substance: SODIUM CHLORIDE
     Indication: Neoplasm malignant
     Dosage: (0.9%) 100 ML, ONE TIME IN ONE DAY, USED TO DILUTE 1000 MG CYCLOPHOSPHAMIDE, AT 08:08
     Route: 041
     Dates: start: 20241123, end: 20241123
  8. SODIUM CHLORIDE [Suspect]
     Active Substance: SODIUM CHLORIDE
     Indication: Chemotherapy
     Dosage: (0.9%) 100 ML, ONE TIME IN ONE DAY, USED TO DILUTE 160 MG EPIRUBICIN HYDROCHLORIDE, AT 08:08
     Route: 041
     Dates: start: 20241123, end: 20241123

REACTIONS (3)
  - Thrombocytosis [Recovering/Resolving]
  - White blood cell count decreased [Recovering/Resolving]
  - Neutrophil count decreased [Recovering/Resolving]

NARRATIVE: CASE EVENT DATE: 20241212
